FAERS Safety Report 21721907 (Version 1)
Quarter: 2022Q4

REPORT INFORMATION
  Report Type: Spontaneous
  Country: CN (occurrence: CN)
  Receive Date: 20221213
  Receipt Date: 20221213
  Transmission Date: 20230113
  Serious: Yes (Hospitalization)
  Sender: FDA-Public Use
  Company Number: CN-GLASSHOUSE PHARMACEUTICALS LIMITED CA-2022GLH00010

PATIENT
  Age: 13 Year
  Sex: Male

DRUGS (6)
  1. OXCARBAZEPINE [Suspect]
     Active Substance: OXCARBAZEPINE
     Indication: Epilepsy
     Dosage: 0.075, EVERY 12 HOURS INITIAL DOSE
     Route: 065
     Dates: start: 20170513
  2. OXCARBAZEPINE [Suspect]
     Active Substance: OXCARBAZEPINE
     Dosage: 0.15, EVERY 12 HOURS
     Route: 065
  3. VALPROIC ACID [Suspect]
     Active Substance: VALPROIC ACID
     Indication: Epilepsy
     Dosage: 5 ML EVERY 12 HOURS
     Route: 065
     Dates: start: 20160325
  4. VALPROIC ACID [Suspect]
     Active Substance: VALPROIC ACID
     Dosage: 0.5 SUSTAINED RELEASE TABLET EVERY 12 HOURS
     Route: 065
  5. LEVETIRACETAM [Concomitant]
     Active Substance: LEVETIRACETAM
     Indication: Epilepsy
     Dosage: UNK
     Route: 065
     Dates: start: 20160720
  6. LEVETIRACETAM [Concomitant]
     Active Substance: LEVETIRACETAM
     Dosage: 0.25, EVERY 12 HOURS
     Route: 065

REACTIONS (3)
  - Electrocardiogram QT prolonged [Recovered/Resolved]
  - Torsade de pointes [Recovered/Resolved]
  - Drug interaction [Recovered/Resolved]
